FAERS Safety Report 4884620-6 (Version None)
Quarter: 2005Q4

REPORT INFORMATION
  Report Type: 
  Country: None (occurrence: None)
  Receive Date: 20051201
  Receipt Date: 20050921
  Transmission Date: 20060501
  Serious: No
  Sender: FDA-Public Use
  Company Number: 2005PV002351

PATIENT
  Age: 56 Year
  Sex: Female
  Weight: 58.514 kg

DRUGS (4)
  1. BYETTA [Suspect]
     Indication: DIABETES MELLITUS NON-INSULIN-DEPENDENT
     Dosage: 5 MCG, BID, SC
     Route: 058
     Dates: start: 20050701, end: 20050701
  2. ACTOS [Concomitant]
  3. AMARYL [Concomitant]
  4. HUMALOG [Concomitant]

REACTIONS (5)
  - BLOOD GLUCOSE DECREASED [None]
  - BLOOD GLUCOSE INCREASED [None]
  - DYSGEUSIA [None]
  - INJECTION SITE BRUISING [None]
  - NAUSEA [None]
